FAERS Safety Report 4348627-X (Version None)
Quarter: 2004Q2

REPORT INFORMATION
  Report Type: 
  Country: None (occurrence: None)
  Receive Date: 20040423
  Receipt Date: 20031215
  Transmission Date: 20050107
  Serious: Yes (Hospitalization)
  Sender: FDA-Public Use
  Company Number: M2004.0308

PATIENT
  Age: 57 Year
  Sex: Male

DRUGS (6)
  1. DICLOFENAC 25 MG TABLETS, UNKNOWN MANUFACTURER [Suspect]
     Indication: INFLAMMATION
  2. LOFEPRAMIDE (LOFEPRAMIN) [Concomitant]
  3. WARFARIN SODIUM [Concomitant]
  4. FUROSEMIDE [Concomitant]
  5. METOLAZONE [Concomitant]
  6. SPIRONOLACTONE [Concomitant]

REACTIONS (3)
  - BLADDER SPASM [None]
  - PAIN [None]
  - PENIS DISORDER [None]
